FAERS Safety Report 22588240 (Version 1)
Quarter: 2023Q2

REPORT INFORMATION
  Report Type: Spontaneous
  Country: US (occurrence: US)
  Receive Date: 20230612
  Receipt Date: 20230612
  Transmission Date: 20230722
  Serious: Yes (Other)
  Sender: FDA-Public Use
  Company Number: US-SCIEGENP-2023SCLIT00297

PATIENT
  Age: 67 Year
  Sex: Female

DRUGS (5)
  1. LEVETIRACETAM [Suspect]
     Active Substance: LEVETIRACETAM
     Indication: Seizure prophylaxis
     Route: 065
  2. PHENOBARBITAL [Suspect]
     Active Substance: PHENOBARBITAL
     Indication: Seizure prophylaxis
     Route: 065
  3. FENTANYL [Concomitant]
     Active Substance: FENTANYL
     Indication: Product used for unknown indication
     Dosage: 25 MCG
     Route: 065
  4. FENTANYL [Concomitant]
     Active Substance: FENTANYL
     Dosage: 50 MCG
     Route: 065
  5. FENTANYL [Concomitant]
     Active Substance: FENTANYL
     Dosage: 50 MCG
     Route: 065

REACTIONS (1)
  - Kounis syndrome [Unknown]
